FAERS Safety Report 8420879 (Version 2)
Quarter: 2013Q2

REPORT INFORMATION
  Report Type: Spontaneous
  Country: US (occurrence: US)
  Receive Date: 20120222
  Receipt Date: 20130520
  Transmission Date: 20140414
  Serious: Yes (Other)
  Sender: FDA-Public Use
  Company Number: US-ROCHE-1040248

PATIENT
  Age: 26 Year
  Sex: Female

DRUGS (2)
  1. ACCUTANE [Suspect]
     Indication: ACNE
     Route: 048
     Dates: start: 20000114, end: 20000420
  2. ACCUTANE [Suspect]
     Route: 048
     Dates: start: 20000501, end: 20000509

REACTIONS (4)
  - Inflammatory bowel disease [Unknown]
  - Injury [Unknown]
  - Colitis [Unknown]
  - Large intestine polyp [Unknown]
